FAERS Safety Report 9887828 (Version 2)
Quarter: 2014Q1

REPORT INFORMATION
  Report Type: Report from Study
  Country: US (occurrence: US)
  Receive Date: 20140211
  Receipt Date: 20140304
  Transmission Date: 20141002
  Serious: No
  Sender: FDA-Public Use
  Company Number: US-B.I. PHARMACEUTICALS,INC./RIDGEFIELD-2014-BI-06014BI

PATIENT
  Sex: Female

DRUGS (10)
  1. APTIVUS [Suspect]
     Indication: ANTIVIRAL TREATMENT
     Dosage: 1000 MG
     Route: 065
  2. DARUNAVIR (PREZISTA?, DRV) [Concomitant]
     Indication: ANTIVIRAL TREATMENT
     Dosage: 1200 MG
     Route: 048
  3. ETRAVIRINE (INTELENCE?, ETR) [Concomitant]
     Indication: ANTIVIRAL TREATMENT
     Dosage: TAB/CAPS
     Route: 048
  4. RALTEGRAVIR (ISENTRESS?, RAL) [Concomitant]
     Indication: ANTIVIRAL TREATMENT
     Dosage: 800 MG
     Route: 065
  5. RITONAVIR (NORVIR?, RTV) [Concomitant]
     Indication: ANTIVIRAL TREATMENT
     Dosage: 200 MG
     Route: 065
  6. RITONAVIR (NORVIR?, RTV) [Concomitant]
     Dosage: 800 MG
     Route: 065
  7. TENOFOVIR DISOPROXIL FUMARATE+EMTRICITABINE (TRUVADA?, TVD) [Concomitant]
     Indication: ANTIVIRAL TREATMENT
     Dosage: FORMULATION: TAB/CAPS, DAILY DOSE: 1.
     Route: 065
  8. TENOFOVIR DISOPROXIL FUMARATE+EMTRICITABINE (TRUVADA?, TVD) [Concomitant]
     Dosage: 800 MG
     Route: 048
  9. ZIDOVUDINE (UNKNOWN MANUFACTURER) [Concomitant]
     Indication: ANTIVIRAL TREATMENT
     Dosage: FORMULATION: TAB/CAPS
     Route: 065
  10. ZIDOVUDINE (UNKNOWN MANUFACTURER) [Concomitant]
     Dosage: 800 MG
     Route: 048

REACTIONS (1)
  - Gestational diabetes [Unknown]
